FAERS Safety Report 25374319 (Version 1)
Quarter: 2025Q2

REPORT INFORMATION
  Report Type: Report from Study
  Country: DE (occurrence: DE)
  Receive Date: 20250529
  Receipt Date: 20250529
  Transmission Date: 20250717
  Serious: Yes (Hospitalization, Other)
  Sender: Haleon PLC
  Company Number: DE-002147023-NVSC2022DE178410

PATIENT
  Sex: Female
  Weight: 67.5 kg

DRUGS (24)
  1. DICLOFENAC [Suspect]
     Active Substance: DICLOFENAC
     Indication: Product used for unknown indication
     Route: 065
  2. Amlodipine,Candesartan [Concomitant]
     Indication: Hypertension
     Dosage: 8 MG/ 5 MG, QD (IN THE MORNING)
     Route: 048
     Dates: start: 20220316
  3. CIPROFLOXACIN HYDROCHLORIDE [Concomitant]
     Active Substance: CIPROFLOXACIN HYDROCHLORIDE
     Indication: Bacterial infection
     Route: 065
     Dates: start: 20220316, end: 20220321
  4. CIPROFLOXACIN HYDROCHLORIDE [Concomitant]
     Active Substance: CIPROFLOXACIN HYDROCHLORIDE
     Dosage: 500 MG, BID (IN THE MORNING AND EVENING)
     Route: 048
     Dates: start: 20220316, end: 20220321
  5. METAMIZOLE [Concomitant]
     Active Substance: METAMIZOLE
     Indication: Spondylitis
     Route: 048
     Dates: start: 20220507
  6. METAMIZOLE [Concomitant]
     Active Substance: METAMIZOLE
     Route: 065
     Dates: start: 20220507
  7. TRAMADOL [Concomitant]
     Active Substance: TRAMADOL
     Indication: Spondylitis
     Route: 065
     Dates: start: 20220507
  8. TRAMADOL [Concomitant]
     Active Substance: TRAMADOL
     Route: 048
     Dates: start: 20220507
  9. ENALAPRIL [Concomitant]
     Active Substance: ENALAPRIL
     Indication: Hypertension
     Route: 065
  10. ENALAPRIL [Concomitant]
     Active Substance: ENALAPRIL
     Dosage: 20 MG, QD (IN THE MORNING)
     Route: 048
  11. VITAMIN D [Concomitant]
     Active Substance: VITAMIN D NOS
     Indication: Vitamin D deficiency
     Dosage: 2000 IU, QD
     Route: 048
     Dates: start: 20211108
  12. IBUPROFEN [Concomitant]
     Active Substance: IBUPROFEN
     Indication: Spondylitis
     Route: 048
  13. IBUPROFEN [Concomitant]
     Active Substance: IBUPROFEN
     Route: 065
  14. IBUPROFEN [Concomitant]
     Active Substance: IBUPROFEN
     Route: 048
     Dates: start: 20220629
  15. PANTOPRAZOLE [Concomitant]
     Active Substance: PANTOPRAZOLE
     Indication: Prophylaxis against gastrointestinal ulcer
     Route: 048
  16. PANTOPRAZOLE [Concomitant]
     Active Substance: PANTOPRAZOLE
     Route: 065
  17. FOSTER [Concomitant]
     Active Substance: BECLOMETHASONE\FORMOTEROL
     Indication: Chronic obstructive pulmonary disease
     Route: 065
  18. FOSTER [Concomitant]
     Active Substance: BECLOMETHASONE\FORMOTEROL
     Route: 055
  19. COSENTYX [Suspect]
     Active Substance: SECUKINUMAB
     Indication: Psoriatic arthropathy
     Route: 065
     Dates: start: 20220103, end: 20220103
  20. COSENTYX [Suspect]
     Active Substance: SECUKINUMAB
     Route: 065
     Dates: start: 20220207, end: 20220207
  21. COSENTYX [Suspect]
     Active Substance: SECUKINUMAB
     Route: 065
     Dates: start: 20220110, end: 20220110
  22. COSENTYX [Suspect]
     Active Substance: SECUKINUMAB
     Route: 065
     Dates: start: 20211227, end: 20211227
  23. COSENTYX [Suspect]
     Active Substance: SECUKINUMAB
     Route: 065
     Dates: start: 20211213, end: 20211213
  24. COSENTYX [Suspect]
     Active Substance: SECUKINUMAB
     Route: 065
     Dates: start: 20211220, end: 20211220

REACTIONS (5)
  - Renal cell carcinoma [Recovered/Resolved with Sequelae]
  - Bone cancer metastatic [Recovered/Resolved]
  - Magnesium deficiency [Unknown]
  - Haemangioma of bone [Unknown]
  - Drug hypersensitivity [Unknown]

NARRATIVE: CASE EVENT DATE: 20220309
